FAERS Safety Report 6051729-3 (Version None)
Quarter: 2009Q1

REPORT INFORMATION
  Report Type: 
  Country: None (occurrence: None)
  Receive Date: 20090126
  Receipt Date: 20090114
  Transmission Date: 20090719
  Serious: Yes (Other)
  Sender: FDA-Public Use
  Company Number: US-ROCHE-607979

PATIENT
  Age: 70 Year
  Sex: Female

DRUGS (1)
  1. BONIVA [Suspect]
     Indication: OSTEOPOROSIS
     Dosage: MISSED THE JANUARY 2009 DOSAGE
     Route: 065
     Dates: start: 20070101

REACTIONS (1)
  - MYOCARDIAL INFARCTION [None]
